FAERS Safety Report 15590759 (Version 2)
Quarter: 2018Q4

REPORT INFORMATION
  Report Type: Report from Study
  Country: PH (occurrence: PH)
  Receive Date: 20181106
  Receipt Date: 20181126
  Transmission Date: 20190205
  Serious: Yes (Death, Other)
  Sender: FDA-Public Use
  Company Number: PHHY2018PH121947

PATIENT
  Age: 53 Year
  Sex: Male

DRUGS (1)
  1. GLIVEC [Suspect]
     Active Substance: IMATINIB MESYLATE
     Indication: GASTROINTESTINAL STROMAL TUMOUR
     Dosage: 400 MG, UNK
     Route: 048
     Dates: start: 20170130

REACTIONS (17)
  - Nodule [Unknown]
  - Abdominal lymphadenopathy [Unknown]
  - Aortic arteriosclerosis [Unknown]
  - Hepatic mass [Unknown]
  - Arteriosclerosis [Unknown]
  - Liver abscess [Unknown]
  - Vertebral osteophyte [Unknown]
  - Vascular compression [Unknown]
  - Renal cyst [Unknown]
  - Gastrointestinal procedural complication [Unknown]
  - Gastrointestinal stromal tumour [Fatal]
  - Malignant neoplasm progression [Fatal]
  - Metastasis [Unknown]
  - Drug ineffective [Unknown]
  - Splenomegaly [Unknown]
  - Vertebral lesion [Unknown]
  - Bladder dilatation [Unknown]

NARRATIVE: CASE EVENT DATE: 20180808
